FAERS Safety Report 7305300-3 (Version None)
Quarter: 2011Q1

REPORT INFORMATION
  Report Type: 
  Country: None (occurrence: None)
  Receive Date: 20110222
  Receipt Date: 20110209
  Transmission Date: 20110831
  Serious: Yes (Hospitalization, Other)
  Sender: FDA-Public Use
  Company Number: US-ELI_LILLY_AND_COMPANY-US201102003256

PATIENT
  Age: 51 Year
  Sex: Female

DRUGS (6)
  1. FLUOXETINE [Concomitant]
  2. PHENOBARBITAL TAB [Concomitant]
     Indication: CONVULSION
  3. FLUPHENAZINE [Concomitant]
  4. ALLEGRA [Concomitant]
  5. ZYPREXA [Suspect]
     Indication: BIPOLAR DISORDER
     Dosage: 30 MG, DAILY (1/D)
     Dates: start: 20060101
  6. TRAZODONE [Concomitant]

REACTIONS (3)
  - PULMONARY EMBOLISM [None]
  - HYPOTHERMIA [None]
  - OVERDOSE [None]
